FAERS Safety Report 6945224-4 (Version None)
Quarter: 2010Q3

REPORT INFORMATION
  Report Type: 
  Country: None (occurrence: None)
  Receive Date: 20100827
  Receipt Date: 20100615
  Transmission Date: 20110219
  Serious: No
  Sender: FDA-Public Use
  Company Number: US-KINGPHARMUSA00001-K201000750

PATIENT
  Age: 80 Year
  Sex: Female
  Weight: 60.317 kg

DRUGS (9)
  1. FLECTOR [Suspect]
     Indication: BACK PAIN
     Dosage: 1 PATCH, BID (EVERY 12 HOURS) PRN
     Route: 061
     Dates: start: 20100602
  2. COUMADIN [Concomitant]
  3. SOTALOL HCL [Concomitant]
     Dosage: 80 MG, UNK
  4. PRAVASTATIN [Concomitant]
     Indication: BLOOD CHOLESTEROL ABNORMAL
  5. MOBIC [Concomitant]
  6. NASONEX [Concomitant]
  7. BACTRIM [Concomitant]
  8. OMEPRAZOLE [Concomitant]
  9. ASPIRIN [Concomitant]
     Dosage: 81 MG, UNK

REACTIONS (4)
  - APPLICATION SITE BLEEDING [None]
  - APPLICATION SITE ERYTHEMA [None]
  - APPLICATION SITE RASH [None]
  - APPLICATION SITE REACTION [None]
